FAERS Safety Report 9809819 (Version 2)
Quarter: 2015Q4

REPORT INFORMATION
  Report Type: Spontaneous
  Country: US (occurrence: US)
  Receive Date: 20140110
  Receipt Date: 20151228
  Transmission Date: 20160305
  Serious: Yes (Other)
  Sender: FDA-Public Use
  Company Number: US-SANOFI-AVENTIS-2013SA067831

PATIENT
  Age: 89 Year

DRUGS (2)
  1. PLAVIX [Suspect]
     Active Substance: CLOPIDOGREL BISULFATE
     Indication: MYOCARDIAL INFARCTION
     Route: 065
     Dates: start: 20031003, end: 20110908
  2. PLAVIX [Suspect]
     Active Substance: CLOPIDOGREL BISULFATE
     Indication: STENT PLACEMENT
     Route: 065
     Dates: start: 20031003, end: 20110908

REACTIONS (6)
  - Cerebral haemorrhage [Unknown]
  - Speech disorder [Unknown]
  - Gait disturbance [Unknown]
  - Eating disorder [Unknown]
  - Thrombotic thrombocytopenic purpura [Unknown]
  - Amnesia [Unknown]

NARRATIVE: CASE EVENT DATE: 201109
